FAERS Safety Report 18565718 (Version 1)
Quarter: 2020Q4

REPORT INFORMATION
  Report Type: Spontaneous
  Country: US (occurrence: US)
  Receive Date: 20201201
  Receipt Date: 20201201
  Transmission Date: 20210114
  Serious: Yes (Hospitalization, Other)
  Sender: FDA-Public Use
  Company Number: US-GLAXOSMITHKLINE-US2020GSK233544

PATIENT
  Sex: Female
  Weight: 59 kg

DRUGS (24)
  1. SERTRALINE [Suspect]
     Active Substance: SERTRALINE HYDROCHLORIDE
     Indication: DEPRESSION
     Dosage: UNK
  2. LORAZEPAM. [Suspect]
     Active Substance: LORAZEPAM
     Indication: DEPRESSION
     Dosage: UNK
  3. LORAZEPAM. [Suspect]
     Active Substance: LORAZEPAM
     Dosage: 0.25 MG, QD
     Dates: start: 2015
  4. MAGNESIUM (MAGNESIUM SALT) [Concomitant]
     Active Substance: MAGNESIUM
     Indication: PRODUCT USED FOR UNKNOWN INDICATION
     Dosage: UNK
  5. CIPROFLOXACIN. [Suspect]
     Active Substance: CIPROFLOXACIN
     Indication: DYSBIOSIS
     Dosage: UNK
  6. TYROSINE [Concomitant]
     Active Substance: TYROSINE
     Indication: PRODUCT USED FOR UNKNOWN INDICATION
     Dosage: UNK
  7. RISPERIDONE. [Suspect]
     Active Substance: RISPERIDONE
     Indication: DEPRESSION
     Dosage: UNK
  8. CLONIDINE. [Suspect]
     Active Substance: CLONIDINE
     Indication: DEPRESSION
  9. RHODIOLA ROSEA [Concomitant]
     Active Substance: HERBALS
     Indication: PRODUCT USED FOR UNKNOWN INDICATION
     Dosage: UNK
  10. BUPROPION. [Suspect]
     Active Substance: BUPROPION
     Indication: DEPRESSION
     Dosage: UNK
  11. LITHIUM. [Suspect]
     Active Substance: LITHIUM
     Indication: DEPRESSION
     Dosage: UNK
  12. AMITRIPTYLINE [Suspect]
     Active Substance: AMITRIPTYLINE
     Indication: DEPRESSION
     Dosage: UNK
  13. FLUOXETINE [Suspect]
     Active Substance: FLUOXETINE HYDROCHLORIDE
     Indication: DEPRESSION
     Dosage: UNK
  14. METHYLPHENIDATE. [Suspect]
     Active Substance: METHYLPHENIDATE
     Indication: DEPRESSION
     Dosage: UNK
  15. DOXYCYCLINE. [Suspect]
     Active Substance: DOXYCYCLINE
     Indication: ROSACEA
     Dosage: UNK
  16. LEVOTHYROXINE. [Suspect]
     Active Substance: LEVOTHYROXINE
     Indication: HYPOTHYROIDISM
     Dosage: UNK
  17. CLONAZEPAM. [Suspect]
     Active Substance: CLONAZEPAM
     Indication: DEPRESSION
     Dosage: UNK
  18. DULOXETINE. [Suspect]
     Active Substance: DULOXETINE
     Indication: DEPRESSION
     Dosage: UNK
  19. METHADONE [Suspect]
     Active Substance: METHADONE HYDROCHLORIDE
     Indication: MIGRAINE
     Dosage: UNK
  20. TRAZODONE [Suspect]
     Active Substance: TRAZODONE HYDROCHLORIDE
     Indication: DEPRESSION
     Dosage: UNK
  21. TRANYLCYPROMINE [Suspect]
     Active Substance: TRANYLCYPROMINE
     Indication: DEPRESSION
     Dosage: UNK
  22. DEPAKOTE [Suspect]
     Active Substance: DIVALPROEX SODIUM
     Indication: DEPRESSION
     Dosage: UNK
  23. VENLAFAXINE [Suspect]
     Active Substance: VENLAFAXINE HYDROCHLORIDE
     Indication: DEPRESSION
     Dosage: UNK
  24. HYDROCODONE + PARACETAMOL [Suspect]
     Active Substance: ACETAMINOPHEN\HYDROCODONE BITARTRATE
     Indication: MIGRAINE
     Dosage: UNK

REACTIONS (45)
  - Discomfort [Recovered/Resolved]
  - Mood altered [Recovered/Resolved]
  - Exercise tolerance decreased [Recovered/Resolved]
  - Constipation [Recovered/Resolved]
  - Gastrooesophageal reflux disease [Unknown]
  - Eczema [Unknown]
  - Drug resistance [Unknown]
  - Pain in extremity [Recovered/Resolved]
  - Food allergy [Unknown]
  - Irritability [Unknown]
  - Suicide attempt [Recovered/Resolved]
  - Akathisia [Recovered/Resolved]
  - Drug dependence [Recovered/Resolved]
  - Disturbance in attention [Recovered/Resolved]
  - Feeling abnormal [Recovered/Resolved]
  - Weight increased [Recovered/Resolved]
  - Substance abuse [Recovered/Resolved]
  - Neuropathy peripheral [Recovered/Resolved]
  - Muscular weakness [Recovered/Resolved]
  - Dyspepsia [Recovered/Resolved]
  - Fatigue [Recovered/Resolved]
  - Electronic cigarette user [Unknown]
  - Thinking abnormal [Recovered/Resolved]
  - Mood swings [Recovered/Resolved]
  - Suicidal ideation [Recovered/Resolved]
  - Memory impairment [Recovered/Resolved]
  - Gastric disorder [Recovered/Resolved]
  - Rosacea [Recovered/Resolved]
  - Sluggishness [Unknown]
  - Condition aggravated [Recovered/Resolved]
  - Intrusive thoughts [Recovered/Resolved]
  - Fear [Recovered/Resolved]
  - Tachyphrenia [Recovered/Resolved]
  - Blood cholesterol increased [Unknown]
  - Drug ineffective [Unknown]
  - Antidepressant discontinuation syndrome [Recovered/Resolved]
  - Gait inability [Recovered/Resolved]
  - Paraesthesia [Recovered/Resolved]
  - Abdominal distension [Recovered/Resolved]
  - Sleep disorder [Recovered/Resolved]
  - Pain [Recovered/Resolved]
  - Asthenia [Recovered/Resolved]
  - Loss of libido [Recovered/Resolved]
  - Anger [Unknown]
  - Intentional overdose [Unknown]

NARRATIVE: CASE EVENT DATE: 2016
